FAERS Safety Report 9866836 (Version 1)
Quarter: 2014Q1

REPORT INFORMATION
  Report Type: Spontaneous
  Country: US (occurrence: None)
  Receive Date: 20140203
  Receipt Date: 20140203
  Transmission Date: 20141002
  Serious: Yes (Disabling)
  Sender: FDA-Public Use
  Company Number: None

PATIENT
  Age: 63 Year
  Sex: Female
  Weight: 76.2 kg

DRUGS (1)
  1. LISINOPRIL/HCTZ [Suspect]
     Indication: HYPERTENSION
     Route: 048
     Dates: start: 20090430, end: 20140117

REACTIONS (8)
  - Muscle spasms [None]
  - Nocturia [None]
  - Cystitis [None]
  - Cough [None]
  - Sinusitis [None]
  - Tetany [None]
  - Hepatic pain [None]
  - Abdominal pain [None]
